FAERS Safety Report 6991407-7 (Version None)
Quarter: 2010Q3

REPORT INFORMATION
  Report Type: 
  Country: None (occurrence: None)
  Receive Date: 20100916
  Receipt Date: 20090820
  Transmission Date: 20110219
  Serious: No
  Sender: FDA-Public Use
  Company Number: US-WYE-H10712909

PATIENT
  Age: 51 Year
  Sex: Female

DRUGS (2)
  1. PRISTIQ [Suspect]
     Indication: MAJOR DEPRESSION
     Dosage: 50 MG, FREQUENCY UNSPECIFIED
     Route: 048
  2. ESTRADIOL [Concomitant]
     Indication: MENOPAUSE

REACTIONS (1)
  - ABNORMAL DREAMS [None]
